FAERS Safety Report 8291511-X (Version None)
Quarter: 2012Q2

REPORT INFORMATION
  Report Type: 
  Country: None (occurrence: None)
  Receive Date: 20120417
  Receipt Date: 20120411
  Transmission Date: 20120825
  Serious: Yes (Other)
  Sender: FDA-Public Use
  Company Number: US-PFIZER INC-2012069790

PATIENT
  Sex: Male
  Weight: 88.435 kg

DRUGS (4)
  1. GABAPENTIN [Suspect]
     Dosage: UNK
  2. IBUPROFEN [Concomitant]
     Indication: BACK PAIN
     Dosage: 800 MG, 3X/DAY
  3. GABAPENTIN [Suspect]
     Indication: BACK PAIN
     Dosage: 600 MG, 3X/DAY
  4. NORCO [Concomitant]
     Indication: BACK PAIN
     Dosage: ^3.25^ MG EIGHT TIMES A DAY

REACTIONS (2)
  - GOUT [None]
  - DRUG INEFFECTIVE [None]
